FAERS Safety Report 5590156-X (Version None)
Quarter: 2008Q1

REPORT INFORMATION
  Report Type: 
  Country: None (occurrence: None)
  Receive Date: 20080114
  Receipt Date: 20070821
  Transmission Date: 20080703
  Serious: No
  Sender: FDA-Public Use
  Company Number: US-ABBOTT-07P-163-0378820-00

PATIENT
  Sex: Female
  Weight: 31.78 kg

DRUGS (5)
  1. OMNICEF [Suspect]
     Indication: EAR INFECTION
     Dosage: 250MG/5ML
     Route: 048
     Dates: start: 20070718
  2. OBETROL [Concomitant]
     Indication: DRUG USE FOR UNKNOWN INDICATION
  3. SEROQUEL [Concomitant]
     Indication: DRUG USE FOR UNKNOWN INDICATION
  4. MONTELUKAST SODIUM [Concomitant]
     Indication: DRUG USE FOR UNKNOWN INDICATION
  5. CLONIDINE [Concomitant]
     Indication: DRUG USE FOR UNKNOWN INDICATION

REACTIONS (1)
  - DIARRHOEA [None]
